FAERS Safety Report 9892361 (Version 1)
Quarter: 2014Q1

REPORT INFORMATION
  Report Type: Spontaneous
  Country: US (occurrence: US)
  Receive Date: 20140212
  Receipt Date: 20140212
  Transmission Date: 20141002
  Serious: Yes (Hospitalization, Disabling)
  Sender: FDA-Public Use
  Company Number: US-ELI_LILLY_AND_COMPANY-US201402000884

PATIENT
  Sex: Male

DRUGS (9)
  1. INSULIN HUMAN [Suspect]
     Indication: TYPE 2 DIABETES MELLITUS
     Dosage: UNK
     Route: 065
  2. INSULIN HUMAN [Suspect]
     Indication: TYPE 2 DIABETES MELLITUS
     Dosage: UNK
     Route: 065
  3. METFORMIN [Concomitant]
     Dosage: UNK, TID
  4. GABAPENTIN [Concomitant]
  5. OXYCODONE [Concomitant]
  6. TRAMADOL [Concomitant]
  7. SIMVASTATIN [Concomitant]
  8. FENOFIBRATE [Concomitant]
  9. TRAZODONE [Concomitant]
     Indication: INSOMNIA

REACTIONS (2)
  - Joint injury [Recovered/Resolved with Sequelae]
  - Pain [Not Recovered/Not Resolved]
